FAERS Safety Report 17472040 (Version 1)
Quarter: 2020Q1

REPORT INFORMATION
  Report Type: Report from Study
  Country: US (occurrence: US)
  Receive Date: 20200228
  Receipt Date: 20200228
  Transmission Date: 20200409
  Serious: Yes (Life-Threatening, Hospitalization)
  Sender: FDA-Public Use
  Company Number: US-ROCHE-2531308

PATIENT
  Age: 58 Year
  Sex: Male
  Weight: 73.9 kg

DRUGS (5)
  1. OXALIPLATIN. [Suspect]
     Active Substance: OXALIPLATIN
     Indication: COLORECTAL CANCER METASTATIC
     Dosage: LAST DOSE OF OXALIPLATIN ADMINISTERED PRIOR TO THE EVENT ONSET: 23/DEC/2019
     Route: 042
     Dates: start: 20190930
  2. BEVACIZUMAB. [Suspect]
     Active Substance: BEVACIZUMAB
     Indication: COLORECTAL CANCER METASTATIC
     Dosage: LAST DOSE OF BEVACIZUMAB ADMINISTERED PRIOR TO THE EVENT ONSET: 23/DEC/2019
     Route: 042
     Dates: start: 20190930
  3. ATEZOLIZUMAB. [Suspect]
     Active Substance: ATEZOLIZUMAB
     Indication: COLORECTAL CANCER METASTATIC
     Dosage: LAST DOSE OF ATEZOLIZUMAB ADMINISTERED PRIOR TO THE EVENT ONSET: 23/DEC/2019
     Route: 042
     Dates: start: 20190930
  4. 5-FLUOROURACIL [FLUOROURACIL] [Suspect]
     Active Substance: FLUOROURACIL
     Indication: COLORECTAL CANCER METASTATIC
     Dosage: 400 MG/M2 IV OVER 2-4 MINUTES ON DAY 1, FOLLOWED BY 2400MG/M2 CONTINUOUS INFUSION OVER 46-48 HOURS S
     Route: 042
     Dates: start: 20190930
  5. LEUCOVORIN CALCIUM. [Suspect]
     Active Substance: LEUCOVORIN CALCIUM
     Indication: COLORECTAL CANCER METASTATIC
     Dosage: LAST DOSE OF LEUCOVORIN CALCIUM ADMINISTERED PRIOR TO THE EVENT ONSET: 23/DEC/2019
     Route: 042
     Dates: start: 20190930

REACTIONS (1)
  - Soft tissue necrosis [Not Recovered/Not Resolved]

NARRATIVE: CASE EVENT DATE: 20200114
